FAERS Safety Report 24441813 (Version 2)
Quarter: 2024Q4

REPORT INFORMATION
  Report Type: Spontaneous
  Country: US (occurrence: US)
  Receive Date: 20241016
  Receipt Date: 20241017
  Transmission Date: 20250115
  Serious: No
  Sender: ROCHE
  Company Number: US-ROCHE-3509913

PATIENT
  Sex: Male
  Weight: 54.43 kg

DRUGS (1)
  1. HEMLIBRA [Suspect]
     Active Substance: EMICIZUMAB-KXWH
     Indication: Factor VIII deficiency
     Dosage: 1.2 ML(180 MG)?STRENGTH- 60 MG/0.4ML
     Route: 058
     Dates: start: 202110

REACTIONS (1)
  - Weight decreased [Unknown]
